FAERS Safety Report 10452034 (Version 1)
Quarter: 2014Q3

REPORT INFORMATION
  Report Type: Spontaneous
  Country: US (occurrence: US)
  Receive Date: 20140915
  Receipt Date: 20140915
  Transmission Date: 20150326
  Serious: Yes (Other)
  Sender: FDA-Public Use
  Company Number: US-ASTRAZENECA-2014SE67794

PATIENT
  Age: 71 Year
  Sex: Female

DRUGS (9)
  1. SYMBICORT [Suspect]
     Active Substance: BUDESONIDE\FORMOTEROL FUMARATE DIHYDRATE
     Indication: INTERSTITIAL LUNG DISEASE
     Dosage: 160/4.5, 2 PUFFS TWO TIMES A DAY
     Route: 055
     Dates: start: 2013
  2. CLARITIN [Concomitant]
     Active Substance: LORATADINE
     Indication: HYPERSENSITIVITY
     Dosage: 1/2 PILL DAILY
     Route: 048
     Dates: start: 201409
  3. ASPIRIN. [Concomitant]
     Active Substance: ASPIRIN
     Indication: CARDIAC DISORDER
     Route: 048
     Dates: start: 1994
  4. ZYRTEC [Concomitant]
     Active Substance: CETIRIZINE HYDROCHLORIDE
  5. SYMBICORT [Suspect]
     Active Substance: BUDESONIDE\FORMOTEROL FUMARATE DIHYDRATE
     Indication: SARCOIDOSIS
     Dosage: 160/4.5, 2 PUFFS TWO TIMES A DAY
     Route: 055
     Dates: start: 2013
  6. PREMARIN [Concomitant]
     Active Substance: ESTROGENS, CONJUGATED
     Indication: HORMONE THERAPY
     Dosage: ABOUT 3 SOMETHING MG DAILY
     Route: 048
  7. ALLEGRA [Concomitant]
     Active Substance: FEXOFENADINE HYDROCHLORIDE
  8. PREDNISONE. [Concomitant]
     Active Substance: PREDNISONE
     Indication: LUNG DISORDER
     Dosage: 80MG TITRATED TO 5MG DAILY
     Route: 048
     Dates: start: 2011
  9. BENICAR [Concomitant]
     Active Substance: OLMESARTAN MEDOXOMIL
     Indication: BLOOD PRESSURE ABNORMAL
     Route: 048
     Dates: start: 2003

REACTIONS (5)
  - Off label use [Not Recovered/Not Resolved]
  - Pulmonary function test decreased [Unknown]
  - Somnolence [Recovered/Resolved]
  - Device misuse [Unknown]
  - Depression [Recovered/Resolved]

NARRATIVE: CASE EVENT DATE: 2013
